FAERS Safety Report 8925333 (Version 2)
Quarter: 2013Q2

REPORT INFORMATION
  Report Type: Report from Study
  Country: US (occurrence: US)
  Receive Date: 20121126
  Receipt Date: 20130509
  Transmission Date: 20140414
  Serious: Yes (Hospitalization, Other)
  Sender: FDA-Public Use
  Company Number: US-ROCHE-1157511

PATIENT
  Age: 67 Year
  Sex: Female
  Weight: 55.1 kg

DRUGS (19)
  1. BEVACIZUMAB [Suspect]
     Indication: NON-SMALL CELL LUNG CANCER
     Dosage: DATE OF LAST DOSE PRIOR TO SAE: 24 JUL 2012
     Route: 042
     Dates: start: 20100310
  2. BEVACIZUMAB [Suspect]
     Route: 042
     Dates: start: 20100601, end: 20120724
  3. PEMETREXED [Suspect]
     Indication: NON-SMALL CELL LUNG CANCER
     Dosage: ATE OF LAST DOSE PRIOR TO SAE: 24 JUL 2012
     Route: 042
     Dates: start: 20100310
  4. PEMETREXED [Suspect]
     Route: 042
     Dates: start: 20100601, end: 20120724
  5. CARBOPLATIN [Suspect]
     Indication: NON-SMALL CELL LUNG CANCER
     Dosage: 6 AUC, ATE OF LAST DOSE PRIOR TO SAE: 11 MAY 2012
     Route: 042
     Dates: start: 20100310
  6. XANAX [Concomitant]
  7. VITAMIN C [Concomitant]
  8. FOLIC ACID [Concomitant]
  9. NAPROXEN [Concomitant]
  10. NORTRIPTYLINE [Concomitant]
  11. PROMETHAZINE [Concomitant]
  12. REGLAN [Concomitant]
  13. TYLENOL [Concomitant]
  14. VITAMIN D3 [Concomitant]
  15. FLONASE [Concomitant]
  16. VITAMIN B12 [Concomitant]
     Route: 065
     Dates: start: 20120302
  17. DYAZIDE [Concomitant]
     Route: 065
     Dates: start: 20111201
  18. ZOFRAN [Concomitant]
  19. NIFEREX [Concomitant]

REACTIONS (2)
  - Cardiomyopathy [Recovered/Resolved]
  - Syncope [Recovered/Resolved]
